FAERS Safety Report 4512659-9 (Version None)
Quarter: 2004Q4

REPORT INFORMATION
  Report Type: 
  Country: None (occurrence: None)
  Receive Date: 20041012
  Receipt Date: 20040617
  Transmission Date: 20050328
  Serious: Yes (Other)
  Sender: FDA-Public Use
  Company Number: A03200402001

PATIENT
  Age: 55 Year
  Sex: Male
  Weight: 95.2554 kg

DRUGS (2)
  1. UROXATRAL [Suspect]
     Indication: PROSTATISM
     Dosage: 10 MG OD - ORAL
     Route: 048
     Dates: start: 20040517, end: 20040520
  2. VALSARTAN [Concomitant]

REACTIONS (3)
  - DIZZINESS [None]
  - HYPOTENSION [None]
  - LOSS OF CONSCIOUSNESS [None]
